FAERS Safety Report 17413542 (Version 1)
Quarter: 2020Q1

REPORT INFORMATION
  Report Type: Spontaneous
  Country: US (occurrence: US)
  Receive Date: 20200129
  Receipt Date: 20200129
  Transmission Date: 20200409
  Serious: Yes (Death, Hospitalization)
  Sender: FDA-Public Use
  Company Number: None

PATIENT
  Sex: Female
  Weight: 48.7 kg

DRUGS (6)
  1. ONCASPAR [Suspect]
     Active Substance: PEGASPARGASE
     Dates: end: 20200106
  2. CYTARABINE. [Suspect]
     Active Substance: CYTARABINE
     Dates: end: 20200105
  3. DEXAMETHASONE. [Suspect]
     Active Substance: DEXAMETHASONE
     Dates: end: 20200114
  4. METHOTREXATE. [Suspect]
     Active Substance: METHOTREXATE
     Dates: end: 20200114
  5. VINCRISTINE SULFATE. [Suspect]
     Active Substance: VINCRISTINE SULFATE
     Dates: end: 20200117
  6. DAUNORUBICIN [Suspect]
     Active Substance: DAUNORUBICIN
     Dates: end: 20200117

REACTIONS (8)
  - Renal infarct [None]
  - Brain midline shift [None]
  - Central nervous system lesion [None]
  - Splenic artery stenosis [None]
  - Hypotension [None]
  - Unresponsive to stimuli [None]
  - Coeliac artery stenosis [None]
  - Hepatic infarction [None]
